FAERS Safety Report 17982411 (Version 1)
Quarter: 2020Q3

REPORT INFORMATION
  Report Type: Spontaneous
  Country: US (occurrence: US)
  Receive Date: 20200706
  Receipt Date: 20200706
  Transmission Date: 20201103
  Serious: No
  Sender: FDA-Public Use
  Company Number: US-BAYER-2020-134284

PATIENT
  Age: 69 Year
  Sex: Male

DRUGS (4)
  1. ALEVE [Suspect]
     Active Substance: NAPROXEN SODIUM
     Indication: PAIN
     Dosage: 1 DF
     Route: 048
     Dates: start: 20200702, end: 20200702
  2. ELIQUIS [Concomitant]
     Active Substance: APIXABAN
     Dosage: UNK UNK, BID
  3. CARDIAZEM [DILTIAZEM] [Concomitant]
     Dosage: UNK UNK, BID
  4. ANTICOAGULANT II [Concomitant]

REACTIONS (2)
  - Rebound effect [Unknown]
  - Somnolence [Recovered/Resolved]
